FAERS Safety Report 21532819 (Version 3)
Quarter: 2022Q4

REPORT INFORMATION
  Report Type: Spontaneous
  Country: US (occurrence: US)
  Receive Date: 20221101
  Receipt Date: 20221201
  Transmission Date: 20230113
  Serious: No
  Sender: FDA-Public Use
  Company Number: US-PFIZER INC-202201224388

PATIENT
  Age: 44 Year
  Sex: Female
  Weight: 81.19 kg

DRUGS (1)
  1. GENOTROPIN [Suspect]
     Active Substance: SOMATROPIN
     Indication: Growth hormone deficiency
     Dosage: UNK, DAILY (DOSE: 0.2; UNIT UNKNOWN)

REACTIONS (3)
  - Drug dose omission by device [Unknown]
  - Device issue [Unknown]
  - Device breakage [Unknown]

NARRATIVE: CASE EVENT DATE: 20220923
